FAERS Safety Report 24815380 (Version 1)
Quarter: 2025Q1

REPORT INFORMATION
  Report Type: Spontaneous
  Country: AT (occurrence: AT)
  Receive Date: 20250107
  Receipt Date: 20250107
  Transmission Date: 20250408
  Serious: Yes (Hospitalization)
  Sender: JOHNSON AND JOHNSON
  Company Number: AT-BAYER-2025A001103

PATIENT
  Sex: Female

DRUGS (2)
  1. XARELTO [Suspect]
     Active Substance: RIVAROXABAN
     Indication: Jugular vein thrombosis
     Dosage: 15 MG, BID
     Route: 048
     Dates: start: 20241226
  2. MAGNESIUM [Concomitant]
     Active Substance: MAGNESIUM
     Indication: Product used for unknown indication

REACTIONS (4)
  - Jugular vein thrombosis [Unknown]
  - Vertigo [Unknown]
  - Muscle spasms [Unknown]
  - Fatigue [Unknown]
